FAERS Safety Report 6230957-8 (Version None)
Quarter: 2009Q2

REPORT INFORMATION
  Report Type: 
  Country: None (occurrence: None)
  Receive Date: 20090616
  Receipt Date: 20090608
  Transmission Date: 20091009
  Serious: Yes (Other)
  Sender: FDA-Public Use
  Company Number: CA-JNJFOC-20090603754

PATIENT
  Sex: Female
  Weight: 66 kg

DRUGS (16)
  1. REMICADE [Suspect]
     Route: 042
  2. REMICADE [Suspect]
     Indication: COLITIS ULCERATIVE
     Route: 042
  3. SOLU-CORTEF [Concomitant]
     Indication: PREMEDICATION
     Route: 042
  4. CRESTOR [Concomitant]
     Route: 048
  5. VITAMIN B-12 [Concomitant]
     Route: 030
  6. ASACOL [Concomitant]
     Route: 048
  7. TUMS [Concomitant]
     Route: 048
  8. VITAMIN D [Concomitant]
     Route: 048
  9. ALL OTHER THERAPEUTIC PRODUCTS [Concomitant]
     Route: 048
  10. VENLAFAXINE HCL [Concomitant]
     Route: 048
  11. NEXIUM [Concomitant]
     Route: 048
  12. BROMAZEPAM [Concomitant]
     Route: 048
  13. CITALOPRAM HYDROBROMIDE [Concomitant]
     Route: 048
  14. ELAVIL [Concomitant]
     Route: 048
  15. VASOTEC [Concomitant]
     Route: 048
  16. CLONIDINE [Concomitant]

REACTIONS (4)
  - COLITIS ULCERATIVE [None]
  - FALL [None]
  - INFUSION RELATED REACTION [None]
  - VULVOVAGINAL MYCOTIC INFECTION [None]
